FAERS Safety Report 22661949 (Version 1)
Quarter: 2023Q2

REPORT INFORMATION
  Report Type: Spontaneous
  Country: PR (occurrence: PR)
  Receive Date: 20230630
  Receipt Date: 20230630
  Transmission Date: 20230722
  Serious: No
  Sender: FDA-Public Use
  Company Number: PR-ABBVIE-5310699

PATIENT
  Age: 26 Year
  Sex: Female

DRUGS (1)
  1. CARIPRAZINE HYDROCHLORIDE [Suspect]
     Active Substance: CARIPRAZINE HYDROCHLORIDE
     Indication: Bipolar disorder
     Route: 048

REACTIONS (2)
  - Skin exfoliation [Unknown]
  - Skin lesion [Recovered/Resolved with Sequelae]

NARRATIVE: CASE EVENT DATE: 20230601
